FAERS Safety Report 10695596 (Version 1)
Quarter: 2015Q1

REPORT INFORMATION
  Report Type: Spontaneous
  Country: US (occurrence: None)
  Receive Date: 20150106
  Receipt Date: 20150106
  Transmission Date: 20150721
  Serious: Yes (Disabling, Other)
  Sender: FDA-Public Use
  Company Number: None

PATIENT
  Age: 69 Year
  Sex: Female
  Weight: 74.84 kg

DRUGS (1)
  1. ENALAPRIL-HCTZ 10-25 MG TEVA USA [Suspect]
     Active Substance: ENALAPRIL\HYDROCHLOROTHIAZIDE
     Indication: DRUG THERAPY
     Dosage: 1 PILL TAKEN BY MOUTH
     Route: 048
     Dates: start: 20141117, end: 20141205

REACTIONS (10)
  - Dizziness [None]
  - Palpitations [None]
  - Headache [None]
  - Fatigue [None]
  - Swelling [None]
  - Product substitution issue [None]
  - Eyelid oedema [None]
  - Swelling face [None]
  - Peripheral swelling [None]
  - Micturition frequency decreased [None]

NARRATIVE: CASE EVENT DATE: 20141205
